FAERS Safety Report 6783537-X (Version None)
Quarter: 2010Q2

REPORT INFORMATION
  Report Type: 
  Country: None (occurrence: None)
  Receive Date: 20100618
  Receipt Date: 20100604
  Transmission Date: 20101027
  Serious: Yes (Other)
  Sender: FDA-Public Use
  Company Number: 002358

PATIENT
  Age: 37 Year
  Sex: Female
  Weight: 51 kg

DRUGS (6)
  1. LACOSAMIDE [Suspect]
     Indication: COMPLEX PARTIAL SEIZURES
     Dosage: (50 MG BID, SLOWLY TITRATED OVER SEVERAL WEEKS TO 600MG/DAY ORAL), (600 MG ORAL), (400 MG, DISCONTIN
     Route: 048
     Dates: start: 20090717, end: 20090101
  2. LACOSAMIDE [Suspect]
     Indication: COMPLEX PARTIAL SEIZURES
     Dosage: (50 MG BID, SLOWLY TITRATED OVER SEVERAL WEEKS TO 600MG/DAY ORAL), (600 MG ORAL), (400 MG, DISCONTIN
     Route: 048
     Dates: start: 20090101, end: 20091028
  3. LACOSAMIDE [Suspect]
     Indication: COMPLEX PARTIAL SEIZURES
     Dosage: (50 MG BID, SLOWLY TITRATED OVER SEVERAL WEEKS TO 600MG/DAY ORAL), (600 MG ORAL), (400 MG, DISCONTIN
     Route: 048
     Dates: start: 20091028, end: 20091201
  4. PREGABALIN [Concomitant]
  5. LAMOTRIGINE [Concomitant]
  6. CARBAMAZEPINE [Concomitant]

REACTIONS (3)
  - ATRIAL FIBRILLATION [None]
  - ATRIAL FLUTTER [None]
  - HEART RATE INCREASED [None]
